FAERS Safety Report 6779088-9 (Version None)
Quarter: 2010Q2

REPORT INFORMATION
  Report Type: 
  Country: None (occurrence: None)
  Receive Date: 20100618
  Receipt Date: 20100607
  Transmission Date: 20101027
  Serious: Yes (Hospitalization)
  Sender: FDA-Public Use
  Company Number: US-ELI_LILLY_AND_COMPANY-US200909000058

PATIENT
  Sex: Male
  Weight: 97.5 kg

DRUGS (9)
  1. GEMCITABINE HYDROCHLORIDE [Suspect]
     Indication: TRANSITIONAL CELL CARCINOMA
     Dosage: 1000 MG/M2, OTHER
     Dates: start: 20090629
  2. CISPLATIN [Suspect]
     Indication: TRANSITIONAL CELL CARCINOMA
     Dosage: 70 MG/M2, OTHER
     Dates: start: 20090629
  3. SUNITINIB MALATE [Suspect]
     Indication: TRANSITIONAL CELL CARCINOMA
     Dosage: 25 MG, OTHER
     Route: 048
     Dates: start: 20090629, end: 20090727
  4. ASPIRIN [Concomitant]
  5. ATENOLOL [Concomitant]
  6. CENTRUM SILVER [Concomitant]
  7. HYDROCHLOROTHIAZIDE [Concomitant]
  8. NEURONTIN [Concomitant]
  9. PRAVASTATIN [Concomitant]

REACTIONS (1)
  - LYMPHOCELE [None]
